FAERS Safety Report 10640291 (Version 1)
Quarter: 2014Q4

REPORT INFORMATION
  Report Type: Spontaneous
  Country: GB (occurrence: None)
  Receive Date: 20141205
  Receipt Date: 20141205
  Transmission Date: 20150529
  Serious: Yes (Hospitalization, Other)
  Sender: FDA-Public Use
  Company Number: GB-ZYDUS-005820

PATIENT
  Age: 54 Year
  Sex: Male

DRUGS (3)
  1. SIMVASTATIN. [Suspect]
     Active Substance: SIMVASTATIN
  2. BENDROFLUMETHIAZIDE (BENDROFLUMETHIAZIDE) [Suspect]
     Active Substance: BENDROFLUMETHIAZIDE
  3. RAMIPRIL (RAMIPRIL) [Suspect]
     Active Substance: RAMIPRIL

REACTIONS (3)
  - Rhabdomyolysis [None]
  - Acute kidney injury [None]
  - Renal tubular necrosis [None]
